FAERS Safety Report 14933184 (Version 1)
Quarter: 2018Q2

REPORT INFORMATION
  Report Type: Spontaneous
  Country: US (occurrence: US)
  Receive Date: 20180524
  Receipt Date: 20180524
  Transmission Date: 20180711
  Serious: No
  Sender: FDA-Public Use
  Company Number: US-CELGENEUS-USA-20180506896

PATIENT
  Age: 33 Year
  Sex: Female

DRUGS (2)
  1. OTEZLA [Suspect]
     Active Substance: APREMILAST
     Indication: PSORIASIS
     Dosage: TITRATION DOSE
     Route: 048
     Dates: start: 20180503
  2. OTEZLA [Suspect]
     Active Substance: APREMILAST
     Dosage: 60 MILLIGRAM
     Route: 048
     Dates: start: 201805

REACTIONS (8)
  - Feeling abnormal [Unknown]
  - Stress [Unknown]
  - Drug dose omission [Unknown]
  - Abdominal discomfort [Unknown]
  - Nausea [Unknown]
  - Diarrhoea [Unknown]
  - Sluggishness [Unknown]
  - Tension headache [Unknown]

NARRATIVE: CASE EVENT DATE: 201805
